FAERS Safety Report 5564616-1 (Version None)
Quarter: 2007Q4

REPORT INFORMATION
  Report Type: 
  Country: None (occurrence: None)
  Receive Date: 20071212
  Receipt Date: 20071130
  Transmission Date: 20080405
  Serious: Yes (Hospitalization, Other)
  Sender: FDA-Public Use
  Company Number: 2007SP024221

PATIENT
  Age: 52 Year
  Sex: Male

DRUGS (4)
  1. RIBAVIRIN [Suspect]
     Indication: HEPATITIS C
     Dates: start: 20070901, end: 20071128
  2. INTERFERON (MANUFACTURER UNKNOWN) (INTERFERON ALFA-2B) [Suspect]
     Indication: HEPATITIS C
     Dates: start: 20070901
  3. KALETRA [Concomitant]
  4. TRUVADA [Concomitant]

REACTIONS (3)
  - ANAEMIA MACROCYTIC [None]
  - HAEMOLYSIS [None]
  - MYELODYSPLASTIC SYNDROME [None]
